FAERS Safety Report 4310353-0 (Version None)
Quarter: 2004Q1

REPORT INFORMATION
  Report Type: 
  Country: None (occurrence: None)
  Receive Date: 20040303
  Receipt Date: 20040213
  Transmission Date: 20041129
  Serious: Yes (Other)
  Sender: FDA-Public Use
  Company Number: GB-ROCHE-359083

PATIENT
  Age: 53 Year
  Sex: Female
  Weight: 102 kg

DRUGS (2)
  1. BONDRONAT [Suspect]
     Route: 048
     Dates: start: 20031212, end: 20040122
  2. HERCEPTIN [Concomitant]
     Route: 042
     Dates: start: 20021031

REACTIONS (1)
  - RASH PRURITIC [None]
